FAERS Safety Report 7343538-X (Version None)
Quarter: 2011Q1

REPORT INFORMATION
  Report Type: 
  Country: None (occurrence: None)
  Receive Date: 20110310
  Receipt Date: 20100416
  Transmission Date: 20110831
  Serious: No
  Sender: FDA-Public Use
  Company Number: A0855456A

PATIENT
  Age: 51 Year
  Sex: Male

DRUGS (3)
  1. NICORETTE (MINT) [Suspect]
  2. NICORETTE (MINT) [Suspect]
  3. NICORETTE [Suspect]

REACTIONS (4)
  - EAR PAIN [None]
  - GLOSSODYNIA [None]
  - GINGIVAL PAIN [None]
  - PARAESTHESIA ORAL [None]
